FAERS Safety Report 18117588 (Version 1)
Quarter: 2020Q3

REPORT INFORMATION
  Report Type: Report from Study
  Country: US (occurrence: US)
  Receive Date: 20200806
  Receipt Date: 20200806
  Transmission Date: 20201103
  Serious: Yes (Hospitalization)
  Sender: FDA-Public Use
  Company Number: US-ROCHE-2273346

PATIENT
  Age: 4 Year
  Sex: Male
  Weight: 27 kg

DRUGS (29)
  1. KEPPRA [Concomitant]
     Active Substance: LEVETIRACETAM
  2. OXYCODONE [Concomitant]
     Active Substance: OXYCODONE
  3. BACTRIM [Concomitant]
     Active Substance: SULFAMETHOXAZOLE\TRIMETHOPRIM
  4. ENTRECTINIB [Suspect]
     Active Substance: ENTRECTINIB
     Route: 048
     Dates: start: 20190312, end: 20190430
  5. GABAPENTIN. [Concomitant]
     Active Substance: GABAPENTIN
  6. VALIUM [Concomitant]
     Active Substance: DIAZEPAM
  7. THIOGUANINE [Concomitant]
     Active Substance: THIOGUANINE
  8. TYLENOL [Concomitant]
     Active Substance: ACETAMINOPHEN
  9. CELECOXIB. [Concomitant]
     Active Substance: CELECOXIB
  10. METHADONE [Concomitant]
     Active Substance: METHADONE HYDROCHLORIDE
     Dates: start: 2015
  11. BACLOFEN. [Concomitant]
     Active Substance: BACLOFEN
  12. HYDROCORTISONE. [Concomitant]
     Active Substance: HYDROCORTISONE
  13. ATIVAN [Concomitant]
     Active Substance: LORAZEPAM
  14. TURMERIC [Concomitant]
     Active Substance: HERBALS\TURMERIC
  15. VINCRISTINE SULPHATE [Concomitant]
     Active Substance: VINCRISTINE SULFATE
  16. ENTRECTINIB [Suspect]
     Active Substance: ENTRECTINIB
     Indication: NEOPLASM
     Dosage: ON 19/FEB/2019, HE RECEIVED THE MOST RECENT DOSE OF ENTRECTINIB PRIOR TO ADVERSE EVENT ONSET.?STARTE
     Route: 048
     Dates: start: 20180418, end: 20190219
  17. BEVACIZUMAB. [Suspect]
     Active Substance: BEVACIZUMAB
     Indication: NEOPLASM
     Route: 065
     Dates: start: 20160708, end: 20170105
  18. CEFDINIR. [Concomitant]
     Active Substance: CEFDINIR
  19. MORPHINE [Concomitant]
     Active Substance: MORPHINE
  20. ONDANSETRON [Concomitant]
     Active Substance: ONDANSETRON
  21. MELATONIN [Concomitant]
     Active Substance: MELATONIN
  22. SCOPOLAMINE [Concomitant]
     Active Substance: SCOPOLAMINE
  23. CARBOPLATIN. [Concomitant]
     Active Substance: CARBOPLATIN
     Indication: ASTROCYTOMA
  24. LOMUSTINE. [Concomitant]
     Active Substance: LOMUSTINE
     Indication: ASTROCYTOMA
  25. PROPRANOLOL [Concomitant]
     Active Substance: PROPRANOLOL HYDROCHLORIDE
  26. DESMOPRESSIN [Concomitant]
     Active Substance: DESMOPRESSIN
  27. CHOLECALCIFEROL [Concomitant]
     Active Substance: CHOLECALCIFEROL
  28. AMLODIPINE [Concomitant]
     Active Substance: AMLODIPINE BESYLATE
  29. PROCARBAZINE HYDROCHLORIDE [Concomitant]
     Active Substance: PROCARBAZINE HYDROCHLORIDE
     Indication: ASTROCYTOMA

REACTIONS (1)
  - Pancreatitis [Recovered/Resolved]

NARRATIVE: CASE EVENT DATE: 20190218
